FAERS Safety Report 5019601-5 (Version None)
Quarter: 2006Q2

REPORT INFORMATION
  Report Type: 
  Country: None (occurrence: None)
  Receive Date: 20060601
  Receipt Date: 20060524
  Transmission Date: 20061013
  Serious: Yes (Other)
  Sender: FDA-Public Use
  Company Number: 2006045470

PATIENT
  Age: 76 Year
  Sex: Male
  Weight: 118.3888 kg

DRUGS (16)
  1. NORVASC [Suspect]
     Indication: HYPERTENSION
     Dosage: 10 MG (10 MG, QD), ORAL
     Route: 048
     Dates: start: 20060301
  2. XANAX [Suspect]
     Indication: ILL-DEFINED DISORDER
     Dosage: ORAL
     Route: 048
  3. ANTIVERT [Suspect]
     Indication: DIZZINESS
     Dosage: (TID)
  4. FLEXERIL [Suspect]
     Indication: MUSCLE SPASTICITY
     Dosage: (BID)
  5. ACTOS [Concomitant]
  6. AMIODARONE HCL [Concomitant]
  7. ASPIRIN [Concomitant]
  8. LOPID [Concomitant]
  9. GLUCOTROL XL [Concomitant]
  10. FERROUS GLUCONATE (FERROUS GLUCONATE) [Concomitant]
  11. LASIX [Concomitant]
  12. PRILOSEC [Concomitant]
  13. SYNTHROID [Concomitant]
  14. EFFEXOR [Concomitant]
  15. ZOCOR [Concomitant]
  16. REMINYL (GALANTAMINE) [Concomitant]

REACTIONS (8)
  - CEREBRAL ATROPHY [None]
  - CEREBRAL ISCHAEMIA [None]
  - CONFUSIONAL STATE [None]
  - DRUG DOSE OMISSION [None]
  - HALLUCINATION, AUDITORY [None]
  - HALLUCINATION, OLFACTORY [None]
  - MEMORY IMPAIRMENT [None]
  - THERAPY REGIMEN CHANGED [None]
